FAERS Safety Report 14988898 (Version 1)
Quarter: 2018Q2

REPORT INFORMATION
  Report Type: Spontaneous
  Country: ES (occurrence: US)
  Receive Date: 20180608
  Receipt Date: 20180608
  Transmission Date: 20180711
  Serious: No
  Sender: FDA-Public Use
  Company Number: ES-AMNEAL PHARMACEUTICALS-2018AMN00317

PATIENT
  Age: 71 Year
  Sex: Female

DRUGS (1)
  1. TRAMADOL HYDROCHLORIDE. [Suspect]
     Active Substance: TRAMADOL HYDROCHLORIDE
     Indication: ARTHRALGIA
     Dosage: 200 MG, 2X/DAY
     Route: 065

REACTIONS (4)
  - Hyponatraemia [None]
  - Proteinuria [Recovering/Resolving]
  - Renal impairment [Recovering/Resolving]
  - Dehydration [None]
